FAERS Safety Report 7127914-6 (Version None)
Quarter: 2010Q4

REPORT INFORMATION
  Report Type: 
  Country: None (occurrence: None)
  Receive Date: 20101130
  Receipt Date: 20101122
  Transmission Date: 20110411
  Serious: Yes (Other)
  Sender: FDA-Public Use
  Company Number: US-PFIZER INC-2010155075

PATIENT
  Sex: Female
  Weight: 66 kg

DRUGS (8)
  1. LIPITOR [Suspect]
     Indication: BLOOD CHOLESTEROL INCREASED
     Dosage: 40 MG, 1X/DAY
     Route: 048
  2. BENICAR [Concomitant]
     Indication: HYPERTENSION
     Dosage: 20 MG, UNK
  3. CARDIZEM CD [Concomitant]
     Indication: HYPERTENSION
     Dosage: 360 MG, DAILY
  4. ACETYLSALICYLIC ACID [Concomitant]
     Dosage: 81 MG, DAILY
  5. LEVOTHYROXINE [Concomitant]
     Indication: THYROID DISORDER
     Dosage: 0.112 UG, DAILY
  6. XANAX [Concomitant]
     Indication: PANIC ATTACK
     Dosage: UNK
  7. NEXIUM [Concomitant]
     Dosage: 40 MG, 2X/DAY
  8. BETAGAN [Concomitant]
     Indication: GLAUCOMA
     Dosage: UNK

REACTIONS (3)
  - BACK INJURY [None]
  - INTERVERTEBRAL DISC PROTRUSION [None]
  - PAIN [None]
